FAERS Safety Report 17372065 (Version 1)
Quarter: 2020Q1

REPORT INFORMATION
  Report Type: Spontaneous
  Country: JP (occurrence: JP)
  Receive Date: 20200205
  Receipt Date: 20200205
  Transmission Date: 20200409
  Serious: Yes (Other)
  Sender: FDA-Public Use
  Company Number: JP-TEVA-2020-JP-001498J

PATIENT
  Age: 23 Year
  Sex: Female

DRUGS (1)
  1. OMEPRAZOLE ENTERIC COATED TABLET 20MG ^TAKEDA TEVA^ [Suspect]
     Active Substance: OMEPRAZOLE
     Indication: PRODUCT USED FOR UNKNOWN INDICATION
     Route: 048

REACTIONS (1)
  - Hyperprolactinaemia [Unknown]
